FAERS Safety Report 7989165-2 (Version None)
Quarter: 2011Q4

REPORT INFORMATION
  Report Type: 
  Country: None (occurrence: None)
  Receive Date: 20111219
  Receipt Date: 20111213
  Transmission Date: 20120403
  Serious: Yes (Death, Other)
  Sender: FDA-Public Use
  Company Number: FR-BRISTOL-MYERS SQUIBB COMPANY-16295024

PATIENT
  Age: 62 Year
  Sex: Female

DRUGS (19)
  1. MELPHALAN HYDROCHLORIDE [Suspect]
     Dosage: IN ONE TAKE
     Route: 042
     Dates: start: 20110112
  2. CLONAZEPAM [Concomitant]
     Dosage: IN EVENING
  3. NEULASTA [Concomitant]
     Dosage: INJ AFTER 5 DAYS OF TRANSPLANT
     Dates: start: 20110101
  4. FLAGYL [Concomitant]
     Indication: DIARRHOEA
     Dates: start: 20110118, end: 20110201
  5. BICNU [Suspect]
     Dosage: IN ONE TAKE
     Route: 042
     Dates: start: 20110107
  6. ETOPOSIDE [Suspect]
     Dosage: ALSO 2*172MG
     Route: 042
     Dates: start: 20110108, end: 20110111
  7. FLUCONAZOLE [Concomitant]
     Dosage: IN MORNING
     Dates: start: 20110101
  8. NEXIUM [Concomitant]
     Dosage: EVENING STARTED
     Dates: start: 20110101
  9. PIPERACILLIN AND TAZOBACTAM [Concomitant]
     Indication: ANTIBIOTIC THERAPY
     Dates: start: 20110116, end: 20110124
  10. DOXORUBICIN HCL [Suspect]
     Route: 042
     Dates: start: 20090501, end: 20091001
  11. FLAGYL [Concomitant]
     Indication: NONSPECIFIC REACTION
     Dates: start: 20110118, end: 20110201
  12. TOBRAMYCIN [Concomitant]
     Indication: ANTIBIOTIC THERAPY
     Dates: start: 20110116, end: 20110124
  13. TIENAM [Concomitant]
     Indication: ANTIBIOTIC THERAPY
     Dates: start: 20110125, end: 20110128
  14. CYTARABINE [Suspect]
     Dosage: ALSO 2*172MG
     Route: 042
     Dates: start: 20110108, end: 20110111
  15. NEORECORMON [Concomitant]
     Dosage: FROM THE 8TH DAY AFTER THE TRANSPLANT
     Dates: start: 20110101
  16. VANCOMYCIN [Concomitant]
     Indication: ANTIBIOTIC THERAPY
     Dates: start: 20110125, end: 20110128
  17. AUGMENTIN [Concomitant]
     Indication: ANTIBIOTIC THERAPY
     Dates: start: 20110129
  18. VALACYCLOVIR HYDROCHLORIDE [Concomitant]
     Dates: start: 20110101
  19. CIPROFLOXACIN [Concomitant]
     Indication: ANTIBIOTIC THERAPY
     Dates: start: 20110119, end: 20110125

REACTIONS (10)
  - DEATH [None]
  - EJECTION FRACTION DECREASED [None]
  - MULTI-ORGAN FAILURE [None]
  - GASTROINTESTINAL HAEMORRHAGE [None]
  - ACUTE PULMONARY OEDEMA [None]
  - RENAL IMPAIRMENT [None]
  - DRUG RASH WITH EOSINOPHILIA AND SYSTEMIC SYMPTOMS [None]
  - CARDIAC FAILURE ACUTE [None]
  - PLEURAL EFFUSION [None]
  - GENERAL PHYSICAL HEALTH DETERIORATION [None]
